FAERS Safety Report 9396248 (Version 2)
Quarter: 2013Q3

REPORT INFORMATION
  Report Type: Spontaneous
  Country: FR (occurrence: FR)
  Receive Date: 20130711
  Receipt Date: 20130917
  Transmission Date: 20140515
  Serious: Yes (Disabling)
  Sender: FDA-Public Use
  Company Number: FR-009507513-1307FRA002875

PATIENT
  Age: 65 Year
  Sex: Female

DRUGS (18)
  1. EMEND [Suspect]
     Indication: PANCREATIC CARCINOMA
     Dosage: 125 MG, QD
     Route: 048
     Dates: start: 20120403
  2. EMEND [Suspect]
     Indication: PANCREATIC CARCINOMA
  3. OXALIPLATIN [Suspect]
     Indication: PANCREATIC CARCINOMA
     Dosage: 85 MG/KG, UNK
     Route: 042
     Dates: start: 20120403
  4. FLUOROURACIL [Suspect]
     Indication: PANCREATIC CARCINOMA
     Dosage: 1600 MG/M2, QD
     Route: 042
     Dates: start: 20120403
  5. IRINOTECAN HYDROCHLORIDE [Suspect]
     Indication: PANCREATIC CARCINOMA
     Dosage: 180 MG/M2, QD
     Route: 042
     Dates: start: 20120403
  6. SOLU-MEDROL [Suspect]
     Indication: PANCREATIC CARCINOMA
     Dosage: 60 MG, UNK
     Route: 042
     Dates: start: 20120403
  7. ATROPINE [Suspect]
     Indication: PANCREATIC CARCINOMA
     Dosage: 0.25 MG, QD
     Route: 058
     Dates: start: 20120403
  8. LEUCOVORIN CALCIUM [Suspect]
     Indication: PANCREATIC CARCINOMA
     Dosage: 288 MG, QD
     Route: 042
     Dates: start: 20130403
  9. ZOPHREN (ONDANSETRON HYDROCHLORIDE) [Suspect]
     Indication: PANCREATIC CARCINOMA
     Dosage: 8 MG, QD
     Route: 042
     Dates: start: 20120403
  10. LEVOTHYROX [Concomitant]
  11. FLUOXETINE [Concomitant]
  12. PRAVASTATIN SODIUM [Concomitant]
  13. VOGALENE [Concomitant]
  14. DIFFU-K [Concomitant]
  15. LOPERAMIDE HYDROCHLORIDE [Concomitant]
  16. EUPANTOL [Concomitant]
  17. PRIMPERAN [Concomitant]
  18. INNOHEP [Concomitant]

REACTIONS (1)
  - Peripheral sensory neuropathy [Not Recovered/Not Resolved]
